FAERS Safety Report 8800073 (Version 1)
Quarter: 2012Q4

REPORT INFORMATION
  Report Type: 
  Country: JP (occurrence: JP)
  Receive Date: 20120921
  Receipt Date: 20120921
  Transmission Date: 20130627
  Serious: Yes (Hospitalization, Other)
  Sender: FDA-Public Use
  Company Number: JP-009507513-2012SP035292

PATIENT
  Sex: Female

DRUGS (11)
  1. REMERON [Suspect]
     Indication: DEPRESSED MOOD
     Dosage: 15 mg, Once
     Route: 048
     Dates: start: 20111124, end: 20120328
  2. REMERON [Suspect]
     Dosage: 30 mg, Once
     Route: 048
     Dates: start: 20120329, end: 20120416
  3. SEROQUEL [Suspect]
     Indication: INSOMNIA
     Dosage: 25 mg, Once
     Route: 048
     Dates: start: 20080417, end: 20110406
  4. SEROQUEL [Suspect]
     Dosage: 50 mg, Once
     Route: 048
     Dates: start: 20110407, end: 20120416
  5. CYMBALTA [Suspect]
     Indication: DEPRESSED MOOD
     Dosage: 20 mg, UNK
     Route: 048
     Dates: start: 20110602, end: 20110629
  6. CYMBALTA [Suspect]
     Dosage: 40 mg, Once
     Route: 048
     Dates: start: 20110630, end: 20110831
  7. CYMBALTA [Suspect]
     Dosage: 60 mg, Once
     Route: 048
     Dates: start: 20110901, end: 20110928
  8. CYMBALTA [Suspect]
     Dosage: 40 mg, Once
     Dates: start: 20110929, end: 20120416
  9. ROHYPNOL [Suspect]
     Indication: INSOMNIA
     Dosage: 1 mg, Once
     Route: 048
     Dates: start: 20080417, end: 20120416
  10. HALCION [Suspect]
     Indication: INSOMNIA
     Dosage: 0.25 mg, Once
     Route: 048
     Dates: start: 20080417, end: 20120416
  11. ETICALM [Suspect]
     Indication: INSOMNIA
     Dosage: 2 mg, Once
     Route: 048
     Dates: start: 20080417, end: 20120416

REACTIONS (3)
  - Blood creatine phosphokinase increased [Recovered/Resolved]
  - Renal impairment [Recovered/Resolved]
  - Hepatic function abnormal [Recovered/Resolved]
